FAERS Safety Report 19186616 (Version 4)
Quarter: 2021Q2

REPORT INFORMATION
  Report Type: Report from Study
  Country: JP (occurrence: JP)
  Receive Date: 20210428
  Receipt Date: 20210630
  Transmission Date: 20210717
  Serious: Yes (Life-Threatening, Other)
  Sender: FDA-Public Use
  Company Number: JP-CELLTRION INC.-2021JP005546

PATIENT

DRUGS (19)
  1. INFLIXIMAB BS FOR I.V. INFUSION100 MG [NK] [Suspect]
     Active Substance: INFLIXIMAB
     Dosage: 400 UNK
     Route: 041
     Dates: start: 20201016
  2. OLOPATADINE HYDROCHLORIDE OD [Concomitant]
     Indication: PSORIATIC ARTHROPATHY
     Dosage: UNK
     Dates: start: 20200812, end: 20201021
  3. DERMOVATE [Concomitant]
     Active Substance: CLOBETASOL
     Indication: PSORIATIC ARTHROPATHY
     Dosage: UNK
     Dates: start: 20120806, end: 20200317
  4. NEXIUM [Concomitant]
     Active Substance: ESOMEPRAZOLE MAGNESIUM
     Indication: PSORIATIC ARTHROPATHY
     Dosage: UNK
     Dates: start: 20200706, end: 20200824
  5. WHITE PETROLATUM [Concomitant]
     Active Substance: PETROLATUM
     Indication: PSORIATIC ARTHROPATHY
     Dosage: UNK
     Dates: start: 20200824
  6. CRAVIT [Concomitant]
     Active Substance: LEVOFLOXACIN
     Indication: DERMAL CYST
     Dosage: UNK
     Dates: start: 20200722, end: 20200728
  7. CLINDAMYCIN. [Concomitant]
     Active Substance: CLINDAMYCIN
     Indication: DERMAL CYST
     Dosage: UNK
     Dates: start: 20200610, end: 20200729
  8. DOVOBET [Concomitant]
     Active Substance: BETAMETHASONE\CALCIPOTRIENE
     Indication: PSORIATIC ARTHROPATHY
     Dosage: UNK
     Dates: start: 20200722, end: 20200728
  9. HYDROCORTISONE. [Concomitant]
     Active Substance: HYDROCORTISONE
     Indication: PSORIATIC ARTHROPATHY
     Dosage: UNK
     Dates: start: 20191126
  10. AZULFIDINE EN?TABS [Concomitant]
     Active Substance: SULFASALAZINE
     Indication: PSORIATIC ARTHROPATHY
     Dosage: UNK
     Dates: start: 20201118
  11. TIGASON [Concomitant]
     Indication: PSORIATIC ARTHROPATHY
     Dosage: UNK
     Route: 048
     Dates: start: 20200813, end: 20200820
  12. DOVOBET [Concomitant]
     Active Substance: BETAMETHASONE\CALCIPOTRIENE
     Indication: PSORIATIC ARTHROPATHY
     Dosage: UNK
     Dates: start: 20151014
  13. ALLELOCK [Concomitant]
     Active Substance: OLOPATADINE HYDROCHLORIDE
     Indication: PSORIATIC ARTHROPATHY
     Dosage: UNK
     Dates: start: 20200706, end: 20200811
  14. INFLIXIMAB BS FOR I.V. INFUSION100 MG [NK] [Suspect]
     Active Substance: INFLIXIMAB
     Indication: PSORIATIC ARTHROPATHY
     Dosage: 400 MG, QD
     Route: 041
     Dates: start: 20191126, end: 20191126
  15. INFLIXIMAB BS FOR I.V. INFUSION100 MG [NK] [Suspect]
     Active Substance: INFLIXIMAB
     Dosage: 400 MG, QD
     Route: 041
     Dates: start: 20200121, end: 20200121
  16. LOCOID [Concomitant]
     Active Substance: HYDROCORTISONE BUTYRATE
     Indication: PSORIATIC ARTHROPATHY
     Dosage: UNK
     Dates: start: 20120416, end: 20200317
  17. HIRUDOID [Concomitant]
     Active Substance: GLYCOSAMINOGLYCANS
     Indication: PSORIATIC ARTHROPATHY
     Dosage: UNK
     Dates: start: 20171011, end: 20200527
  18. LOXONIN [Concomitant]
     Active Substance: LOXOPROFEN SODIUM
     Indication: PSORIATIC ARTHROPATHY
     Dosage: UNK
     Dates: start: 20200706, end: 20200824
  19. OTEZLA [Concomitant]
     Active Substance: APREMILAST
     Indication: PSORIATIC ARTHROPATHY
     Dosage: UNK
     Route: 048
     Dates: start: 20200901, end: 20201014

REACTIONS (9)
  - Overdose [Unknown]
  - Metastases to lymph nodes [Recovering/Resolving]
  - Dermal cyst [Recovered/Resolved]
  - Arthropathy [Unknown]
  - Breast cancer [Recovering/Resolving]
  - Surgery [Unknown]
  - Psoriasis [Unknown]
  - Off label use [Unknown]
  - Postoperative wound infection [Recovered/Resolved]

NARRATIVE: CASE EVENT DATE: 201912
